FAERS Safety Report 12836326 (Version 6)
Quarter: 2017Q1

REPORT INFORMATION
  Report Type: Spontaneous
  Country: US (occurrence: US)
  Receive Date: 20161011
  Receipt Date: 20170217
  Transmission Date: 20170428
  Serious: Yes (Hospitalization, Other)
  Sender: FDA-Public Use
  Company Number: US-GLAXOSMITHKLINE-US2016148573

PATIENT
  Sex: Female

DRUGS (4)
  1. VENTOLIN HFA [Suspect]
     Active Substance: ALBUTEROL SULFATE
     Indication: ASTHMA
     Dosage: 2 PUFF(S), BID
     Route: 055
  2. SINGULAIR [Concomitant]
     Active Substance: MONTELUKAST SODIUM
  3. QVAR [Concomitant]
     Active Substance: BECLOMETHASONE DIPROPIONATE
  4. VENTOLIN HFA [Suspect]
     Active Substance: ALBUTEROL SULFATE
     Indication: CHRONIC OBSTRUCTIVE PULMONARY DISEASE
     Dosage: UNK

REACTIONS (9)
  - Device use error [Unknown]
  - Cough [Not Recovered/Not Resolved]
  - Product quality issue [Unknown]
  - Wheezing [Not Recovered/Not Resolved]
  - Medication error [Recovered/Resolved]
  - Hospitalisation [Recovered/Resolved]
  - Drug dose omission [Unknown]
  - Product cleaning inadequate [Unknown]
  - Dyspnoea [Not Recovered/Not Resolved]
